FAERS Safety Report 5809212-3 (Version None)
Quarter: 2008Q3

REPORT INFORMATION
  Report Type: 
  Country: None (occurrence: None)
  Receive Date: 20080714
  Receipt Date: 20080702
  Transmission Date: 20090109
  Serious: Yes (Other)
  Sender: FDA-Public Use
  Company Number: CA-PFIZER INC-2008056547

PATIENT
  Age: 72 Year
  Sex: Male

DRUGS (7)
  1. CHANTIX [Suspect]
     Route: 048
  2. LAMOTRIGINE [Concomitant]
  3. BUPROPION HCL [Concomitant]
  4. AMITRIPTYLINE HCL [Concomitant]
  5. CLONAZEPAM [Concomitant]
  6. SPIRIVA [Concomitant]
  7. GABAPENTIN [Concomitant]

REACTIONS (2)
  - NARCOLEPSY [None]
  - SLEEP APNOEA SYNDROME [None]
